FAERS Safety Report 18214884 (Version 1)
Quarter: 2020Q3

REPORT INFORMATION
  Report Type: Spontaneous
  Country: US (occurrence: US)
  Receive Date: 20200831
  Receipt Date: 20200831
  Transmission Date: 20201103
  Serious: No
  Sender: FDA-Public Use
  Company Number: US-AMAG PHARMACEUTICALS, INC.-AMAG202002836

PATIENT
  Sex: Female

DRUGS (2)
  1. INTRAROSA [Suspect]
     Active Substance: PRASTERONE
     Indication: URINARY TRACT INFECTION
  2. INTRAROSA [Suspect]
     Active Substance: PRASTERONE
     Indication: URETHRAL PAIN
     Dosage: STARTED SAMPLES,  A ^2 WEEK TRIAL^ PER HCP^S ORDER. SHE HAS USED 4 VAGINAL INSERTS SO FAR, INSERTING
     Route: 067
     Dates: start: 20200814

REACTIONS (5)
  - Urethral pain [Not Recovered/Not Resolved]
  - Off label use [Unknown]
  - Insomnia [Not Recovered/Not Resolved]
  - Administration site discharge [Not Recovered/Not Resolved]
  - Micturition urgency [Not Recovered/Not Resolved]

NARRATIVE: CASE EVENT DATE: 20200814
